FAERS Safety Report 15188310 (Version 1)
Quarter: 2018Q3

REPORT INFORMATION
  Report Type: Spontaneous
  Country: CN (occurrence: CN)
  Receive Date: 20180724
  Receipt Date: 20180724
  Transmission Date: 20181010
  Serious: Yes (Other)
  Sender: FDA-Public Use
  Company Number: CN-009507513-1805CHN007503

PATIENT
  Age: 54 Year
  Sex: Male

DRUGS (9)
  1. EMEND [Suspect]
     Active Substance: APREPITANT
     Indication: ANTIEMETIC SUPPORTIVE CARE
     Dosage: 125 MG,1 HOUR BEFORE CHEMOTHERAPY AT DAY 1 OF 4TH CYCLE, 80 MG QD IN THE MORNING AT DAY 2 AND 3
     Route: 048
     Dates: start: 20160224, end: 2016
  2. DOCETAXEL. [Concomitant]
     Active Substance: DOCETAXEL
     Dosage: 120 MG, UNK
     Route: 041
     Dates: start: 20160224
  3. CISPLATIN. [Concomitant]
     Active Substance: CISPLATIN
     Dosage: 130 MG, UNK
     Route: 041
     Dates: start: 20151211
  4. CISPLATIN. [Concomitant]
     Active Substance: CISPLATIN
     Dosage: 130 MG, UNK
     Route: 041
     Dates: start: 20151231
  5. DOCETAXEL. [Concomitant]
     Active Substance: DOCETAXEL
     Dosage: 120 MG, UNK
     Route: 041
     Dates: start: 20151231
  6. DOCETAXEL. [Concomitant]
     Active Substance: DOCETAXEL
     Dosage: 120 MG, UNK
     Route: 041
     Dates: start: 20160128
  7. CISPLATIN. [Concomitant]
     Active Substance: CISPLATIN
     Dosage: 130 MG, UNK
     Route: 041
     Dates: start: 20160128
  8. DOCETAXEL. [Concomitant]
     Active Substance: DOCETAXEL
     Dosage: 120 MG, UNK
     Route: 041
     Dates: start: 20151211
  9. CISPLATIN. [Concomitant]
     Active Substance: CISPLATIN
     Dosage: 130 MG, UNK
     Route: 041
     Dates: start: 20160224

REACTIONS (3)
  - Rash morbilliform [Recovering/Resolving]
  - Rash pruritic [Recovered/Resolved]
  - Rash erythematous [Recovering/Resolving]

NARRATIVE: CASE EVENT DATE: 20160227
